FAERS Safety Report 8253255-X (Version None)
Quarter: 2012Q2

REPORT INFORMATION
  Report Type: 
  Country: None (occurrence: None)
  Receive Date: 20120402
  Receipt Date: 20120308
  Transmission Date: 20120825
  Serious: No
  Sender: FDA-Public Use
  Company Number: US-AMGEN-USASP2012014301

PATIENT
  Age: 63 Year
  Sex: Female

DRUGS (3)
  1. ARAVA [Concomitant]
     Dosage: 1 MG, UNK
  2. ENBREL [Suspect]
     Indication: RHEUMATOID ARTHRITIS
     Dosage: 25 MG, 2 TIMES/WK
     Dates: start: 20110705, end: 20120110
  3. ENBREL [Suspect]
     Indication: OSTEOARTHRITIS

REACTIONS (6)
  - FOOT DEFORMITY [None]
  - PYREXIA [None]
  - LARYNGITIS [None]
  - ARTHRITIS [None]
  - SINUSITIS [None]
  - HEADACHE [None]
